FAERS Safety Report 18570626 (Version 27)
Quarter: 2023Q4

REPORT INFORMATION
  Report Type: Report from Study
  Country: DE (occurrence: DE)
  Receive Date: 20201202
  Receipt Date: 20231221
  Transmission Date: 20240110
  Serious: Yes (Hospitalization, Other)
  Sender: FDA-Public Use
  Company Number: DE-TAKEDA-2020TUS052731

PATIENT
  Age: 17 Year
  Sex: Female

DRUGS (15)
  1. PROTEIN C [Suspect]
     Active Substance: PROTEIN C
     Indication: Protein C deficiency
     Dosage: 4000 MILLIGRAM, 2/WEEK
     Route: 042
     Dates: start: 20200901, end: 20210330
  2. PROTEIN C [Suspect]
     Active Substance: PROTEIN C
     Dosage: 4000 MILLIGRAM, 2/WEEK
     Route: 042
     Dates: start: 20201119
  3. PROTEIN C [Suspect]
     Active Substance: PROTEIN C
     Dosage: 4000 MILLIGRAM, 2/WEEK
     Route: 042
     Dates: start: 20201120
  4. PROTEIN C [Suspect]
     Active Substance: PROTEIN C
     Dosage: 4000 INTERNATIONAL UNIT, 2/WEEK
     Route: 042
  5. PROTEIN C [Suspect]
     Active Substance: PROTEIN C
     Dosage: 4000 INTERNATIONAL UNIT, 2/WEEK
     Route: 042
  6. PROTEIN C [Suspect]
     Active Substance: PROTEIN C
     Dosage: 4000 MILLIGRAM, 2/WEEK
     Route: 042
  7. PROTEIN C [Suspect]
     Active Substance: PROTEIN C
     Dosage: 4000 INTERNATIONAL UNIT, 2/WEEK
     Route: 042
  8. PROTEIN C [Suspect]
     Active Substance: PROTEIN C
     Dosage: 4000 INTERNATIONAL UNIT
     Route: 042
  9. PROTEIN C [Suspect]
     Active Substance: PROTEIN C
     Dosage: 4000 INTERNATIONAL UNIT, 2/WEEK
     Route: 042
  10. PROTEIN C [Suspect]
     Active Substance: PROTEIN C
     Dosage: 4000 INTERNATIONAL UNIT, 2/WEEK
     Route: 042
  11. PROTEIN C [Suspect]
     Active Substance: PROTEIN C
     Dosage: 4000 INTERNATIONAL UNIT
     Route: 042
  12. PROTEIN C [Suspect]
     Active Substance: PROTEIN C
     Dosage: 4000 INTERNATIONAL UNIT, QOD
     Route: 042
     Dates: end: 20221222
  13. PROTEIN C [Suspect]
     Active Substance: PROTEIN C
     Dosage: 4000 INTERNATIONAL UNIT, 2/WEEK
     Route: 042
  14. ELIQUIS [Suspect]
     Active Substance: APIXABAN
     Indication: Amputation
     Dosage: 5 MILLIGRAM, BID
     Route: 058
  15. ELIQUIS [Suspect]
     Active Substance: APIXABAN
     Indication: Anticoagulant therapy
     Dosage: UNK
     Route: 048

REACTIONS (33)
  - Cholelithiasis [Recovered/Resolved]
  - COVID-19 [Recovered/Resolved]
  - Craniofacial fracture [Recovered/Resolved]
  - Protein C deficiency [Unknown]
  - Cough [Recovered/Resolved]
  - Asthenia [Recovering/Resolving]
  - Fatigue [Recovered/Resolved]
  - Rhinorrhoea [Recovered/Resolved]
  - Insomnia [Recovering/Resolving]
  - Back pain [Recovered/Resolved]
  - Vitamin D deficiency [Recovering/Resolving]
  - Vomiting [Recovered/Resolved]
  - Injection site pain [Recovered/Resolved]
  - Abdominal pain [Recovered/Resolved]
  - Chest pain [Recovering/Resolving]
  - Dermatitis allergic [Recovering/Resolving]
  - Pruritus allergic [Recovering/Resolving]
  - Dysmenorrhoea [Not Recovered/Not Resolved]
  - Nasopharyngitis [Recovered/Resolved]
  - Oropharyngeal pain [Recovered/Resolved]
  - Dry skin [Recovered/Resolved]
  - Gastritis [Recovered/Resolved]
  - Skin tightness [Recovered/Resolved]
  - Eyelid skin dryness [Recovered/Resolved]
  - Gait disturbance [Unknown]
  - Fall [Recovering/Resolving]
  - Epistaxis [Recovering/Resolving]
  - Erythema [Recovered/Resolved]
  - Nausea [Recovered/Resolved]
  - Headache [Recovered/Resolved]
  - Pruritus [Recovered/Resolved]
  - Off label use [Unknown]
  - Wrong technique in product usage process [Recovered/Resolved]

NARRATIVE: CASE EVENT DATE: 20210406
